FAERS Safety Report 4672656-X (Version None)
Quarter: 2005Q2

REPORT INFORMATION
  Report Type: 
  Country: None (occurrence: None)
  Receive Date: 20050524
  Receipt Date: 20050513
  Transmission Date: 20051028
  Serious: Yes (Life-Threatening, Hospitalization, Disabling)
  Sender: FDA-Public Use
  Company Number: US-MERCK-0505USA01776

PATIENT
  Age: 45 Year
  Sex: Female

DRUGS (4)
  1. VIOXX [Suspect]
     Indication: NECK INJURY
     Route: 048
     Dates: start: 20010601, end: 20010701
  2. VIOXX [Suspect]
     Route: 048
     Dates: start: 20040701, end: 20040101
  3. VIOXX [Suspect]
     Indication: MUSCLE INJURY
     Route: 048
     Dates: start: 20010601, end: 20010701
  4. VIOXX [Suspect]
     Route: 048
     Dates: start: 20040701, end: 20040101

REACTIONS (1)
  - CEREBROVASCULAR ACCIDENT [None]
